FAERS Safety Report 25036224 (Version 1)
Quarter: 2025Q1

REPORT INFORMATION
  Report Type: Spontaneous
  Country: US (occurrence: None)
  Receive Date: 20250303
  Receipt Date: 20250303
  Transmission Date: 20250409
  Serious: Yes (Other)
  Sender: FDA-CTU
  Company Number: None

PATIENT
  Age: 28 Year
  Sex: Male
  Weight: 72 kg

DRUGS (2)
  1. LEVAQUIN [Suspect]
     Active Substance: LEVOFLOXACIN
     Indication: Sinusitis
     Dates: start: 20240915, end: 20240921
  2. Lexapro 15 mg [Concomitant]

REACTIONS (5)
  - Tendonitis [None]
  - Gait disturbance [None]
  - Myalgia [None]
  - Rotator cuff syndrome [None]
  - Tendonitis [None]

NARRATIVE: CASE EVENT DATE: 20241012
